FAERS Safety Report 21407864 (Version 1)
Quarter: 2022Q4

REPORT INFORMATION
  Report Type: Spontaneous
  Country: US (occurrence: US)
  Receive Date: 20221004
  Receipt Date: 20221004
  Transmission Date: 20230112
  Serious: Yes (Death, Other)
  Sender: FDA-Public Use
  Company Number: US-SA-SAC20221003001176

PATIENT
  Age: 84 Year

DRUGS (1)
  1. ZANTAC [Suspect]
     Active Substance: RANITIDINE HYDROCHLORIDE
     Dosage: UNKNOWN AT THIS TIME; FREQUENCY: OTHER
     Dates: start: 198901, end: 202101

REACTIONS (4)
  - Colorectal cancer stage IV [Fatal]
  - Gastric cancer stage IV [Fatal]
  - Lip and/or oral cavity cancer stage IV [Fatal]
  - Colon cancer stage IV [Fatal]

NARRATIVE: CASE EVENT DATE: 20201201
